FAERS Safety Report 8082834-8 (Version None)
Quarter: 2012Q1

REPORT INFORMATION
  Report Type: 
  Country: None (occurrence: None)
  Receive Date: 20120127
  Receipt Date: 20110319
  Transmission Date: 20120608
  Serious: No
  Sender: FDA-Public Use
  Company Number: US-ABBOTT-11P-163-0697489-00

PATIENT
  Sex: Female

DRUGS (7)
  1. CALTRATE [Concomitant]
     Indication: MINERAL SUPPLEMENTATION
     Dosage: DAILY
  2. FOLIC ACID [Concomitant]
     Indication: VITAMIN SUPPLEMENTATION
  3. RESTASIS [Concomitant]
     Indication: DRY EYE
     Dosage: 1 VIAL DAILY
  4. FISH OIL [Concomitant]
     Indication: SUPPLEMENTATION THERAPY
  5. ONE A DAY [Concomitant]
     Indication: VITAMIN SUPPLEMENTATION
     Dosage: MULTIVITAMIN
  6. HUMIRA [Suspect]
     Indication: CROHN'S DISEASE
     Dates: start: 20101001, end: 20110303
  7. RECLAST [Concomitant]
     Indication: OSTEOARTHRITIS
     Dosage: INFUSION / ANNUALLY

REACTIONS (5)
  - INJECTION SITE REACTION [None]
  - INJECTION SITE PAPULE [None]
  - INJECTION SITE ERYTHEMA [None]
  - SLEEP DISORDER [None]
  - INJECTION SITE PRURITUS [None]
